FAERS Safety Report 13585237 (Version 1)
Quarter: 2017Q2

REPORT INFORMATION
  Report Type: Spontaneous
  Country: JP (occurrence: JP)
  Receive Date: 20170526
  Receipt Date: 20170526
  Transmission Date: 20170830
  Serious: Yes (Other)
  Sender: FDA-Public Use
  Company Number: JP-BAYER-2017-093713

PATIENT
  Sex: Male

DRUGS (2)
  1. NEXAVAR [Suspect]
     Active Substance: SORAFENIB
     Indication: HEPATIC CANCER
     Route: 048
  2. UFT [Suspect]
     Active Substance: TEGAFUR\URACIL
     Dosage: UNK
     Route: 048

REACTIONS (3)
  - Drug interaction [None]
  - Metastases to lung [None]
  - Feeling abnormal [None]
